FAERS Safety Report 4699185-1 (Version None)
Quarter: 2005Q2

REPORT INFORMATION
  Report Type: 
  Country: None (occurrence: None)
  Receive Date: 20050624
  Receipt Date: 20050415
  Transmission Date: 20051028
  Serious: Yes (Life-Threatening)
  Sender: FDA-Public Use
  Company Number: CN-GLAXOSMITHKLINE-B0382218A

PATIENT
  Age: 20 Year
  Sex: Female

DRUGS (1)
  1. ACETAMINOPHEN [Suspect]
     Dosage: 2TAB PER DAY
     Route: 048
     Dates: start: 20000420

REACTIONS (9)
  - ANAPHYLACTIC REACTION [None]
  - BLOOD PRESSURE DECREASED [None]
  - CHEST PAIN [None]
  - CONVULSION [None]
  - DYSPNOEA [None]
  - PALLOR [None]
  - PALPITATIONS [None]
  - PERIPHERAL COLDNESS [None]
  - RASH GENERALISED [None]
